FAERS Safety Report 11969965 (Version 1)
Quarter: 2016Q1

REPORT INFORMATION
  Report Type: Spontaneous
  Country: DE (occurrence: DE)
  Receive Date: 20160128
  Receipt Date: 20160128
  Transmission Date: 20160526
  Serious: Yes (Other)
  Sender: FDA-Public Use
  Company Number: DE-ELI_LILLY_AND_COMPANY-DE201601006259

PATIENT
  Sex: Female

DRUGS (2)
  1. METFORMIN [Concomitant]
     Active Substance: METFORMIN HYDROCHLORIDE
     Dosage: 850 DF, QD
     Route: 048
     Dates: start: 201512
  2. TRULICITY [Suspect]
     Active Substance: DULAGLUTIDE
     Indication: TYPE 2 DIABETES MELLITUS
     Dosage: 1.5 MG, WEEKLY (1/W)
     Route: 058
     Dates: start: 20151219, end: 20160102

REACTIONS (17)
  - Anal pruritus [Unknown]
  - Eructation [Unknown]
  - Amnesia [Unknown]
  - Disorientation [Unknown]
  - Thirst [Unknown]
  - Arthralgia [Unknown]
  - Sleep disorder [Unknown]
  - Back pain [Unknown]
  - Abdominal distension [Unknown]
  - Anorectal discomfort [Unknown]
  - Pain of skin [Unknown]
  - Coagulopathy [Unknown]
  - Tension headache [Unknown]
  - Ageusia [Unknown]
  - Flatulence [Unknown]
  - Diarrhoea [Unknown]
  - Dry mouth [Unknown]

NARRATIVE: CASE EVENT DATE: 20151219
